FAERS Safety Report 14941838 (Version 1)
Quarter: 2018Q2

REPORT INFORMATION
  Report Type: Spontaneous
  Country: US (occurrence: US)
  Receive Date: 20180527
  Receipt Date: 20180527
  Transmission Date: 20180711
  Serious: Yes (Hospitalization)
  Sender: FDA-Public Use
  Company Number: PHHY2018US007582

PATIENT
  Age: 75 Year
  Sex: Female

DRUGS (3)
  1. ETANERCEPT [Suspect]
     Active Substance: ETANERCEPT
     Indication: RHEUMATOID ARTHRITIS
     Route: 065
  2. HYDROXYCHLOROQUINE [Suspect]
     Active Substance: HYDROXYCHLOROQUINE
     Indication: RHEUMATOID ARTHRITIS
     Route: 065
  3. ACICLOVIR [Suspect]
     Active Substance: ACYCLOVIR
     Indication: HERPES ZOSTER CUTANEOUS DISSEMINATED
     Route: 042

REACTIONS (7)
  - Pain [Recovered/Resolved]
  - Rash generalised [Recovered/Resolved]
  - Blister [Recovered/Resolved]
  - Herpes zoster cutaneous disseminated [Recovered/Resolved]
  - Skin lesion [Recovered/Resolved]
  - Acute kidney injury [Recovered/Resolved]
  - Rash [Recovered/Resolved]
